FAERS Safety Report 9462196 (Version 1)
Quarter: 2013Q3

REPORT INFORMATION
  Report Type: Spontaneous
  Country: US (occurrence: US)
  Receive Date: 20130816
  Receipt Date: 20130816
  Transmission Date: 20140515
  Serious: Yes (Hospitalization, Other)
  Sender: FDA-Public Use
  Company Number: US-GILEAD-2013-0081437

PATIENT
  Sex: Male

DRUGS (2)
  1. LETAIRIS [Suspect]
     Indication: PULMONARY HYPERTENSION
     Dates: start: 20130606
  2. VENTAVIS [Concomitant]

REACTIONS (5)
  - Catheterisation cardiac [Unknown]
  - Drug ineffective [Unknown]
  - Fluid retention [Unknown]
  - Dyspnoea [Unknown]
  - Local swelling [Unknown]
